FAERS Safety Report 6378946-7 (Version None)
Quarter: 2009Q3

REPORT INFORMATION
  Report Type: 
  Country: None (occurrence: None)
  Receive Date: 20090928
  Receipt Date: 20090831
  Transmission Date: 20100115
  Serious: Yes (Hospitalization)
  Sender: FDA-Public Use
  Company Number: NZ-ASTRAZENECA-2009SE14424

PATIENT
  Age: 31337 Day
  Sex: Female

DRUGS (1)
  1. QUETIAPINE FUMARATE [Suspect]
     Indication: BIPOLAR DISORDER
     Route: 048
     Dates: start: 20020202, end: 20020203

REACTIONS (3)
  - ARRHYTHMIA [None]
  - CIRCULATORY COLLAPSE [None]
  - VOMITING [None]
